FAERS Safety Report 11720164 (Version 1)
Quarter: 2015Q4

REPORT INFORMATION
  Report Type: Spontaneous
  Country: US (occurrence: US)
  Receive Date: 20151110
  Receipt Date: 20151110
  Transmission Date: 20160304
  Serious: No
  Sender: FDA-Public Use
  Company Number: US-TEVA-606826USA

PATIENT
  Sex: Female

DRUGS (7)
  1. GABAPENTIN. [Concomitant]
     Active Substance: GABAPENTIN
     Dates: start: 20080220
  2. VITAMINS [Concomitant]
     Active Substance: VITAMINS
     Dates: start: 20080220
  3. ASPIRIN. [Concomitant]
     Active Substance: ASPIRIN
     Dates: start: 20080220
  4. COPAXONE [Suspect]
     Active Substance: GLATIRAMER ACETATE
     Indication: MULTIPLE SCLEROSIS
     Dates: start: 2014
  5. FEXOFENADINE [Concomitant]
     Active Substance: FEXOFENADINE\FEXOFENADINE HYDROCHLORIDE
     Dates: start: 20080220
  6. ACIPHEX [Concomitant]
     Active Substance: RABEPRAZOLE SODIUM
     Dates: start: 20080220
  7. CALCIUM [Concomitant]
     Active Substance: CALCIUM
     Dates: start: 20080220

REACTIONS (1)
  - Fatigue [Unknown]
